FAERS Safety Report 4497027-0 (Version None)
Quarter: 2004Q4

REPORT INFORMATION
  Report Type: 
  Country: None (occurrence: None)
  Receive Date: 20040928
  Receipt Date: 20040723
  Transmission Date: 20050328
  Serious: No
  Sender: FDA-Public Use
  Company Number: 04P-163-0267966-00

PATIENT
  Age: 67 Year
  Sex: Female
  Weight: 81.6475 kg

DRUGS (6)
  1. HUMIRA [Suspect]
     Indication: RHEUMATOID ARTHRITIS
     Dosage: 40 MG, 1 IN 2 WK, SUBCUTANEOUS
     Route: 058
     Dates: start: 20030101
  2. HUMULIN 70/30 [Concomitant]
  3. PREDNISONE [Concomitant]
  4. OXYCOCET [Concomitant]
  5. SULFASALAZINE [Concomitant]
  6. BUCINDOLOL HYDROCHLORIDE [Concomitant]

REACTIONS (5)
  - BLOOD GLUCOSE INCREASED [None]
  - DRUG INEFFECTIVE [None]
  - DRY MOUTH [None]
  - MUSCLE CRAMP [None]
  - PRURITUS [None]
